FAERS Safety Report 15778030 (Version 1)
Quarter: 2018Q4

REPORT INFORMATION
  Report Type: Spontaneous
  Country: FR (occurrence: FR)
  Receive Date: 20181231
  Receipt Date: 20181231
  Transmission Date: 20190205
  Serious: Yes (Other)
  Sender: FDA-Public Use
  Company Number: FR-JNJFOC-20181232481

PATIENT
  Age: 17 Year
  Sex: Male
  Weight: 43 kg

DRUGS (2)
  1. XARELTO [Suspect]
     Active Substance: RIVAROXABAN
     Indication: THROMBOSIS
     Dosage: XARELTO 15 MG
     Route: 048
     Dates: start: 20180924
  2. XARELTO [Suspect]
     Active Substance: RIVAROXABAN
     Indication: THROMBOSIS
     Dosage: XARELTO 20 MG
     Route: 048

REACTIONS (3)
  - Neutropenia [Unknown]
  - Leukopenia [Unknown]
  - Product administered to patient of inappropriate age [Unknown]
